FAERS Safety Report 9381912 (Version 1)
Quarter: 2013Q3

REPORT INFORMATION
  Report Type: Spontaneous
  Country: DE (occurrence: DE)
  Receive Date: 20130703
  Receipt Date: 20130703
  Transmission Date: 20140515
  Serious: Yes (Death, Life-Threatening, Hospitalization)
  Sender: FDA-Public Use
  Company Number: PHHY2013DE069023

PATIENT
  Age: 74 Year
  Sex: Female

DRUGS (1)
  1. METFORMIN [Suspect]
     Dosage: 1.7 G PER DAY

REACTIONS (7)
  - Shock [Fatal]
  - Multi-organ failure [Not Recovered/Not Resolved]
  - Renal failure acute [Not Recovered/Not Resolved]
  - Diabetic nephropathy [Not Recovered/Not Resolved]
  - Anuria [Not Recovered/Not Resolved]
  - Drug level increased [Not Recovered/Not Resolved]
  - Lactic acidosis [Not Recovered/Not Resolved]
